FAERS Safety Report 7044493-2 (Version None)
Quarter: 2010Q4

REPORT INFORMATION
  Report Type: 
  Country: None (occurrence: None)
  Receive Date: 20101013
  Receipt Date: 20101013
  Transmission Date: 20110411
  Serious: Yes (Hospitalization)
  Sender: FDA-Public Use
  Company Number: None

PATIENT
  Sex: Female
  Weight: 62.1428 kg

DRUGS (2)
  1. RAD001 EVEROLIMUS 5 MG NOVARTIS [Suspect]
     Indication: BREAST CANCER METASTATIC
     Dosage: 5 MG DAILY PO
     Route: 048
     Dates: start: 20100922
  2. SEE ATTACHED MED SHEET - ATTACHED [Concomitant]

REACTIONS (1)
  - DRUG INEFFECTIVE [None]
